FAERS Safety Report 5574817-4 (Version None)
Quarter: 2007Q4

REPORT INFORMATION
  Report Type: 
  Country: None (occurrence: None)
  Receive Date: 20071130
  Receipt Date: 20070914
  Transmission Date: 20080405
  Serious: No
  Sender: FDA-Public Use
  Company Number: PHEH2007US12514

PATIENT
  Sex: Female

DRUGS (2)
  1. TEKTURNA [Suspect]
  2. CRESTOR [Concomitant]

REACTIONS (2)
  - DIZZINESS [None]
  - HOT FLUSH [None]
